FAERS Safety Report 9892561 (Version 1)
Quarter: 2014Q1

REPORT INFORMATION
  Report Type: Spontaneous
  Country: PL (occurrence: PL)
  Receive Date: 20140212
  Receipt Date: 20140212
  Transmission Date: 20141002
  Serious: Yes (Hospitalization)
  Sender: FDA-Public Use
  Company Number: PHHY2014PL014593

PATIENT
  Age: 63 Year
  Sex: Female

DRUGS (3)
  1. CLOBETASOL PROPIONATE [Suspect]
     Indication: PSORIASIS
     Route: 061
  2. HYDROCORTISONE ACETATE [Suspect]
     Indication: PSORIASIS
     Route: 061
  3. CORTICOSTEROID NOS [Suspect]

REACTIONS (9)
  - Erythrodermic psoriasis [Recovering/Resolving]
  - Dermatitis [Recovering/Resolving]
  - Papule [Recovering/Resolving]
  - Skin exfoliation [Recovering/Resolving]
  - Erythema [Recovering/Resolving]
  - Skin lesion [Recovering/Resolving]
  - Pruritus [Recovering/Resolving]
  - Rash pustular [Recovering/Resolving]
  - Skin swelling [Recovering/Resolving]
